FAERS Safety Report 9775844 (Version 2)
Quarter: 2014Q1

REPORT INFORMATION
  Report Type: Not Available
  Country: US (occurrence: US)
  Receive Date: 20131220
  Receipt Date: 20140131
  Transmission Date: 20141002
  Serious: Yes (Hospitalization)
  Sender: FDA-Public Use
  Company Number: US-ONYX-2013-2081

PATIENT
  Age: 65 Year
  Sex: Female

DRUGS (3)
  1. KYPROLIS [Suspect]
     Indication: PLASMA CELL MYELOMA
     Route: 042
     Dates: start: 201311, end: 20140102
  2. DEXAMETHASONE [Concomitant]
     Indication: PLASMA CELL MYELOMA
     Route: 048
  3. PROCRIT [Concomitant]
     Indication: ANAEMIA

REACTIONS (7)
  - Blood potassium increased [Unknown]
  - Hyperkalaemia [Unknown]
  - Anaemia [Unknown]
  - White blood cell count decreased [Recovering/Resolving]
  - Platelet count decreased [Recovering/Resolving]
  - Disease progression [Not Recovered/Not Resolved]
  - Confusional state [Unknown]
